FAERS Safety Report 20118708 (Version 1)
Quarter: 2021Q4

REPORT INFORMATION
  Report Type: Spontaneous
  Country: US (occurrence: US)
  Receive Date: 20211126
  Receipt Date: 20211126
  Transmission Date: 20220303
  Serious: Yes (Other)
  Sender: FDA-Public Use
  Company Number: US-DSPHARMA-2021SUN004400

PATIENT

DRUGS (1)
  1. LATUDA [Suspect]
     Active Substance: LURASIDONE HYDROCHLORIDE
     Dosage: UNK
     Route: 048

REACTIONS (9)
  - Intentional self-injury [Recovering/Resolving]
  - Autism spectrum disorder [Recovering/Resolving]
  - Bipolar II disorder [Recovering/Resolving]
  - Suicidal ideation [Recovering/Resolving]
  - Emotional disorder [Recovering/Resolving]
  - Attention deficit hyperactivity disorder [Recovering/Resolving]
  - Mania [Recovering/Resolving]
  - Anxiety [Unknown]
  - Therapy cessation [Unknown]
